FAERS Safety Report 4542664-8 (Version None)
Quarter: 2004Q4

REPORT INFORMATION
  Report Type: 
  Country: None (occurrence: None)
  Receive Date: 20041230
  Receipt Date: 20031202
  Transmission Date: 20050328
  Serious: Yes (Hospitalization, Disabling, Other)
  Sender: FDA-Public Use
  Company Number: US-MERCK-0312USA00274

PATIENT
  Age: 50 Year
  Sex: Male
  Weight: 149 kg

DRUGS (21)
  1. NAPROXEN [Concomitant]
     Indication: PAIN
     Route: 065
     Dates: start: 20010615, end: 20010904
  2. ACETAMINOPHEN [Concomitant]
     Indication: PAIN
     Route: 065
     Dates: start: 20000601
  3. AUGMENTIN '125' [Concomitant]
     Route: 065
  4. VIOXX [Suspect]
     Indication: OSTEOARTHRITIS
     Route: 048
     Dates: start: 20010101, end: 20010917
  5. ALLEGRA [Concomitant]
     Route: 065
  6. CIPRO [Concomitant]
     Route: 065
  7. VERAPAMIL [Concomitant]
     Route: 065
  8. ASPIRIN [Concomitant]
     Route: 065
  9. IBUPROFEN [Concomitant]
     Route: 065
  10. VIOXX [Suspect]
     Route: 048
     Dates: start: 20010101, end: 20010917
  11. VIOXX [Suspect]
     Route: 048
     Dates: start: 20010620, end: 20010101
  12. XALATAN [Concomitant]
     Indication: GLAUCOMA
     Route: 065
     Dates: start: 19970724
  13. BETOPTIC [Concomitant]
     Indication: GLAUCOMA
     Route: 065
     Dates: start: 19890101
  14. AMARYL [Concomitant]
     Indication: DIABETES MELLITUS
     Route: 065
     Dates: start: 20000703
  15. ACCUPRIL [Concomitant]
     Indication: BLOOD PRESSURE
     Route: 065
     Dates: start: 20000824
  16. HYDROCHLOROTHIAZIDE [Concomitant]
     Indication: HYPERTENSION
     Route: 065
     Dates: start: 19980615, end: 20010624
  17. METOPROLOL [Concomitant]
     Indication: BLOOD PRESSURE
     Route: 065
     Dates: start: 19970724
  18. AVAPRO [Concomitant]
     Indication: BLOOD PRESSURE
     Route: 065
     Dates: start: 20010706, end: 20010903
  19. CARDURA [Concomitant]
     Indication: HYPERTENSION
     Route: 065
     Dates: start: 20010409, end: 20011219
  20. LIPITOR [Concomitant]
     Indication: BLOOD CHOLESTEROL INCREASED
     Route: 065
     Dates: start: 20000613
  21. NIACIN [Concomitant]
     Indication: BLOOD CHOLESTEROL INCREASED
     Route: 065
     Dates: start: 20000613

REACTIONS (24)
  - ASTHENIA [None]
  - ATAXIA [None]
  - BACK INJURY [None]
  - CELLULITIS [None]
  - CEREBROVASCULAR ACCIDENT [None]
  - CHEST PAIN [None]
  - DIABETES MELLITUS INADEQUATE CONTROL [None]
  - DYSPNOEA [None]
  - EJACULATION DISORDER [None]
  - ERECTILE DYSFUNCTION [None]
  - EYE PAIN [None]
  - HYPERTENSION [None]
  - HYPOAESTHESIA [None]
  - JOINT EFFUSION [None]
  - LACUNAR INFARCTION [None]
  - NAUSEA [None]
  - PAIN IN EXTREMITY [None]
  - PIGMENTARY GLAUCOMA [None]
  - RETINAL VEIN OCCLUSION [None]
  - ROAD TRAFFIC ACCIDENT [None]
  - SEXUAL DYSFUNCTION [None]
  - SINUS DISORDER [None]
  - TRANSIENT ISCHAEMIC ATTACK [None]
  - WHIPLASH INJURY [None]
